FAERS Safety Report 17804980 (Version 1)
Quarter: 2020Q2

REPORT INFORMATION
  Report Type: Other
  Country: None (occurrence: CN)
  Receive Date: 20200520
  Receipt Date: 20200520
  Transmission Date: 20200714
  Serious: Yes (Hospitalization)
  Sender: FDA-Public Use
  Company Number: CN-JIANGSU HENGRUI MEDICINE CO., LTD.-2083980

PATIENT
  Age: 12 Year
  Sex: Male
  Weight: 60 kg

DRUGS (5)
  1. CISATRACURIUM BESYLATE INJECTION USP, 10 MG/5 ML (2 MG/ML) AND 200 MG/ [Suspect]
     Active Substance: CISATRACURIUM BESYLATE
     Indication: GENERAL ANAESTHESIA
     Route: 042
     Dates: start: 20200507, end: 20200507
  2. ETOMIDATE FAT EMULSION INJECTION [Suspect]
     Active Substance: ETOMIDATE
     Route: 042
     Dates: start: 20200507, end: 20200507
  3. REMIFENTANIL HYDROCHLORIDE FOR INJECTION [Suspect]
     Active Substance: REMIFENTANIL HYDROCHLORIDE
     Route: 050
     Dates: start: 20200507, end: 20200507
  4. SEVOFLURANE FOR INHALATION [Suspect]
     Active Substance: SEVOFLURANE
     Route: 055
     Dates: start: 20200507, end: 20200507
  5. SODIUM CHLORIDE INJECTION [Concomitant]
     Active Substance: SODIUM CHLORIDE
     Route: 042
     Dates: start: 20200507, end: 20200507

REACTIONS (3)
  - Schizophrenia [Recovering/Resolving]
  - Mental disorder [Recovering/Resolving]
  - Dysphoria [Recovering/Resolving]

NARRATIVE: CASE EVENT DATE: 20200507
